FAERS Safety Report 5322878-X (Version None)
Quarter: 2007Q2

REPORT INFORMATION
  Report Type: 
  Country: None (occurrence: None)
  Receive Date: 20070511
  Receipt Date: 20070502
  Transmission Date: 20071010
  Serious: Yes (Other)
  Sender: FDA-Public Use
  Company Number: US-PFIZER INC-2007036071

PATIENT
  Sex: Male
  Weight: 97.5 kg

DRUGS (23)
  1. EXUBERA [Suspect]
     Indication: DIABETES MELLITUS NON-INSULIN-DEPENDENT
     Dates: start: 20070327, end: 20070502
  2. VITAMIN B-12 [Concomitant]
     Route: 060
  3. PLAVIX [Concomitant]
  4. ACETYLSALICYLIC ACID SRT [Concomitant]
  5. AMBIEN [Concomitant]
  6. VITAMIN CAP [Concomitant]
  7. VITAMIN E [Concomitant]
  8. FISH OIL [Concomitant]
  9. TAMSULOSIN HCL [Concomitant]
  10. TOPROL-XL [Concomitant]
  11. ACIPHEX [Concomitant]
  12. GLUCOSAMINE [Concomitant]
  13. SAW PALMETTO [Concomitant]
  14. COENZYME Q10 [Concomitant]
  15. METAGLIP [Concomitant]
  16. CRESTOR [Concomitant]
  17. NIACIN [Concomitant]
  18. ALTACE [Concomitant]
  19. ZETIA [Concomitant]
  20. AVANDIA [Concomitant]
     Route: 060
  21. BYETTA [Concomitant]
  22. LEXAPRO [Concomitant]
  23. AVODART [Concomitant]

REACTIONS (3)
  - DYSPNOEA [None]
  - SWOLLEN TONGUE [None]
  - TONGUE BLACK HAIRY [None]
